FAERS Safety Report 18368440 (Version 1)
Quarter: 2020Q4

REPORT INFORMATION
  Report Type: Spontaneous
  Country: CN (occurrence: CN)
  Receive Date: 20201009
  Receipt Date: 20201009
  Transmission Date: 20210114
  Serious: Yes (Life-Threatening)
  Sender: FDA-Public Use
  Company Number: CN-BAXTER-2020BAX020353

PATIENT
  Age: 8 Year
  Sex: Male
  Weight: 16.4 kg

DRUGS (6)
  1. SODIUM CHLORIDE. [Suspect]
     Active Substance: SODIUM CHLORIDE
     Dosage: SAIDESA OF 37 MG + NS, DAY 1-7
     Route: 058
     Dates: start: 20200924, end: 20200929
  2. SAIDESA (CYTARABINE) [Suspect]
     Active Substance: CYTARABINE
     Indication: ACUTE LYMPHOCYTIC LEUKAEMIA
     Dosage: SAIDESA  + NS OF 0.5 ML, DAY1 - 7
     Route: 058
     Dates: start: 20200923, end: 20200923
  3. SAIDESA (CYTARABINE) [Suspect]
     Active Substance: CYTARABINE
     Dosage: SAIDESA  + NS OF 0.5 ML, DAY1 - 7
     Route: 058
     Dates: start: 20200924, end: 20200929
  4. SODIUM CHLORIDE. [Suspect]
     Active Substance: SODIUM CHLORIDE
     Indication: MEDICATION DILUTION
     Dosage: ENDOXAN 0.73 G + NS, DAY 1
     Route: 041
     Dates: start: 20200923, end: 20200923
  5. SODIUM CHLORIDE. [Suspect]
     Active Substance: SODIUM CHLORIDE
     Indication: MEDICATION DILUTION
     Dosage: SAIDESA OF 37 MG + NS, DAY 1-7
     Route: 058
     Dates: start: 20200923, end: 20200923
  6. ENDOXAN [Suspect]
     Active Substance: CYCLOPHOSPHAMIDE
     Indication: ACUTE LYMPHOCYTIC LEUKAEMIA
     Dosage: ENDOXAN + NS OF 250 ML, DAY 1
     Route: 041
     Dates: start: 20200923, end: 20200923

REACTIONS (4)
  - Epilepsy [Recovering/Resolving]
  - Hyponatraemia [Recovering/Resolving]
  - Lactic acidosis [Recovering/Resolving]
  - Vomiting [Recovering/Resolving]

NARRATIVE: CASE EVENT DATE: 20200923
